FAERS Safety Report 18962696 (Version 1)
Quarter: 2021Q1

REPORT INFORMATION
  Report Type: Spontaneous
  Country: US (occurrence: US)
  Receive Date: 20210302
  Receipt Date: 20210302
  Transmission Date: 20210420
  Serious: Yes (Hospitalization)
  Sender: FDA-Public Use
  Company Number: None

PATIENT
  Age: 71 Year
  Sex: Male
  Weight: 71.21 kg

DRUGS (1)
  1. LOSARTAN (LOSARTAN 25MG TAB) [Suspect]
     Active Substance: LOSARTAN
     Indication: CARDIAC FAILURE CONGESTIVE
     Route: 048
     Dates: start: 20200119, end: 20200212

REACTIONS (1)
  - Hyperkalaemia [None]

NARRATIVE: CASE EVENT DATE: 20200212
